FAERS Safety Report 4765816-0 (Version None)
Quarter: 2005Q3

REPORT INFORMATION
  Report Type: 
  Country: None (occurrence: None)
  Receive Date: 20050906
  Receipt Date: 20050823
  Transmission Date: 20060218
  Serious: Yes (Hospitalization, Other)
  Sender: FDA-Public Use
  Company Number: HQWYE687612MAY05

PATIENT
  Age: 56 Year
  Sex: Male

DRUGS (13)
  1. TACROLIMUS, CONTROL FOR SIROLIMUS (TACROLIMUS, CONROL FOR SIROLIMUS,) [Suspect]
     Indication: PROPHYLAXIS AGAINST TRANSPLANT REJECTION
     Dosage: 0.5 MG 1X PER 12 HR ORAL
     Route: 048
  2. MYCOPHENOLATE MOFETIL (MYCOPHENOLATE MOFETIL,) [Suspect]
     Indication: PROPHYLAXIS AGAINST TRANSPLANT REJECTION
     Dosage: 1 G 2X PER 1 DAY ORAL
     Route: 048
  3. PREDNISONE [Suspect]
     Indication: PROPHYLAXIS AGAINST TRANSPLANT REJECTION
     Dosage: 10 MG 1X PER 1 DAY ORAL
     Route: 048
  4. ZENAPAX [Suspect]
     Indication: PROPHYLAXIS AGAINST TRANSPLANT REJECTION
  5. PANTOPRAZOLE SODIUM [Concomitant]
  6. VALACYCLOVIR HCL [Concomitant]
  7. VALGANCICLOVIR (VALGANCICLOVIR) [Concomitant]
  8. DIDROCAL (CALCIUM CARBONATE/ETIDRONATE DISODIUM) [Concomitant]
  9. CITRACAL (CALCIUM CITRATE) [Concomitant]
  10. FLOMAX [Concomitant]
  11. FERROUS GLUCONATE (FERROUS GLUCONATE) [Concomitant]
  12. ARANESP [Concomitant]
  13. MAGNESIUM (MAGNESIUM) [Concomitant]

REACTIONS (3)
  - CRYPTOGENIC ORGANIZING PNEUMONIA [None]
  - GENERAL PHYSICAL HEALTH DETERIORATION [None]
  - RESPIRATORY FAILURE [None]
